FAERS Safety Report 7104447-4 (Version None)
Quarter: 2010Q4

REPORT INFORMATION
  Report Type: 
  Country: None (occurrence: None)
  Receive Date: 20101116
  Receipt Date: 20101108
  Transmission Date: 20110411
  Serious: Yes (Hospitalization, Other)
  Sender: FDA-Public Use
  Company Number: US-BIOGENIDEC-2010BI020894

PATIENT
  Age: 53 Year
  Sex: Female
  Weight: 68 kg

DRUGS (2)
  1. AVONEX [Suspect]
     Indication: MULTIPLE SCLEROSIS
     Route: 030
     Dates: start: 20060608, end: 20101001
  2. TYLENOL [Concomitant]

REACTIONS (5)
  - KNEE ARTHROPLASTY [None]
  - MUSCLE TWITCHING [None]
  - PARTIAL SEIZURES [None]
  - PULSE ABSENT [None]
  - THROMBOSIS [None]
